FAERS Safety Report 19396098 (Version 2)
Quarter: 2021Q3

REPORT INFORMATION
  Report Type: Spontaneous
  Country: US (occurrence: US)
  Receive Date: 20210610
  Receipt Date: 20210806
  Transmission Date: 20211014
  Serious: Yes (Other)
  Sender: FDA-Public Use
  Company Number: US-CELLTRION INC.-2021US007544

PATIENT

DRUGS (1)
  1. INFLECTRA [Suspect]
     Active Substance: INFLIXIMAB-DYYB
     Indication: RHEUMATOID ARTHRITIS
     Dosage: STRENGTH: 100MG/10ML VIAL, 495 MG INFUSION EVERY 4 WEEKS
     Route: 065
     Dates: start: 20210504, end: 20210601

REACTIONS (9)
  - Peripheral swelling [Unknown]
  - Hypersensitivity [Unknown]
  - Overdose [Unknown]
  - Lip swelling [Unknown]
  - Hypotension [Recovering/Resolving]
  - Swelling face [Unknown]
  - Pruritus [Unknown]
  - Off label use [Unknown]
  - Vision blurred [Unknown]

NARRATIVE: CASE EVENT DATE: 20210601
